FAERS Safety Report 23015245 (Version 1)
Quarter: 2023Q4

REPORT INFORMATION
  Report Type: Spontaneous
  Country: US (occurrence: None)
  Receive Date: 20231002
  Receipt Date: 20231002
  Transmission Date: 20240109
  Serious: No
  Sender: FDA-Public Use
  Company Number: None

PATIENT
  Age: 70 Year
  Sex: Female

DRUGS (4)
  1. ENBREL [Suspect]
     Active Substance: ETANERCEPT
     Indication: Anaemia
     Dosage: FREQUENCY : WEEKLY;?
     Dates: start: 202308
  2. ENBREL [Suspect]
     Active Substance: ETANERCEPT
     Indication: Carpal tunnel syndrome
  3. ENBREL [Suspect]
     Active Substance: ETANERCEPT
     Indication: Carpal tunnel syndrome
  4. ENBREL [Suspect]
     Active Substance: ETANERCEPT
     Indication: Rheumatoid arthritis

REACTIONS (3)
  - Illness [None]
  - Headache [None]
  - Fatigue [None]
